FAERS Safety Report 22708149 (Version 2)
Quarter: 2024Q1

REPORT INFORMATION
  Report Type: Spontaneous
  Country: IT (occurrence: IT)
  Receive Date: 20230715
  Receipt Date: 20240214
  Transmission Date: 20240410
  Serious: Yes (Hospitalization, Other)
  Sender: FDA-Public Use
  Company Number: IT-Accord-359538

PATIENT
  Age: 16 Year
  Sex: Female

DRUGS (8)
  1. ARIPIPRAZOLE [Interacting]
     Active Substance: ARIPIPRAZOLE
     Indication: Major depression
     Dosage: 15 MG, DAILY
  2. FLUOXETINE [Suspect]
     Active Substance: FLUOXETINE HYDROCHLORIDE
     Indication: Sleep disorder
     Dosage: 40 MG, QD
  3. DULOXETINE [Interacting]
     Active Substance: DULOXETINE
     Indication: Major depression
     Dosage: 120 MG FOR 3 MONTH
  4. MIRTAZAPINE [Interacting]
     Active Substance: MIRTAZAPINE
     Indication: Sleep disorder
     Dosage: 15 MG, QD
  5. LITHIUM [Interacting]
     Active Substance: LITHIUM
     Indication: Autism spectrum disorder
     Dosage: 12 MMOL DAILY
  6. MIRTAZAPINE [Interacting]
     Active Substance: MIRTAZAPINE
     Indication: Sleep disorder
     Dosage: 30 MG, DAILY
  7. FLUOXETINE [Suspect]
     Active Substance: FLUOXETINE HYDROCHLORIDE
     Indication: Sleep disorder
     Dosage: 20 MG, QD
  8. DULOXETINE [Interacting]
     Active Substance: DULOXETINE
     Indication: Major depression
     Dosage: RECEIVED 60 MG FOR 5 MONTHS

REACTIONS (4)
  - Drug interaction [Unknown]
  - Treatment failure [Unknown]
  - Vision blurred [Unknown]
  - Electrocardiogram repolarisation abnormality [Unknown]
